FAERS Safety Report 20931529 (Version 1)
Quarter: 2022Q2

REPORT INFORMATION
  Report Type: Spontaneous
  Country: US (occurrence: None)
  Receive Date: 20220607
  Receipt Date: 20220607
  Transmission Date: 20220721
  Serious: Yes (Other)
  Sender: FDA-Public Use
  Company Number: None

PATIENT
  Age: 55 Year
  Sex: Female

DRUGS (5)
  1. FULPHILA [Suspect]
     Active Substance: PEGFILGRASTIM-JMDB
     Indication: Malignant neoplasm of thorax
     Dosage: OTHER FREQUENCY : Q 21 DAYS;?
     Route: 058
     Dates: start: 20211201
  2. Humulin INJ U-500 [Concomitant]
  3. Metformin 1000 MG TAB [Concomitant]
  4. Ondansetron 8 MG TAB [Concomitant]
  5. METOPROLOL TARTRATE [Concomitant]
     Active Substance: METOPROLOL TARTRATE

REACTIONS (4)
  - Fatigue [None]
  - Pain [None]
  - Pain in extremity [None]
  - Muscular weakness [None]

NARRATIVE: CASE EVENT DATE: 20220607
